FAERS Safety Report 7379623-6 (Version None)
Quarter: 2011Q1

REPORT INFORMATION
  Report Type: 
  Country: None (occurrence: None)
  Receive Date: 20110329
  Receipt Date: 20110314
  Transmission Date: 20110831
  Serious: Yes (Hospitalization)
  Sender: FDA-Public Use
  Company Number: US-VIROPHARMA INCORPORATED-20110314CINRY1878

PATIENT
  Sex: Female
  Weight: 70.37 kg

DRUGS (2)
  1. CINRYZE [Suspect]
     Indication: HEREDITARY ANGIOEDEMA
     Dates: start: 20091120
  2. BIRTH CONTROL PILLS (UNSPECIFED) [Concomitant]
     Indication: PRODUCT USED FOR UNKNOWN INDICATION
     Dosage: UNKNOWN

REACTIONS (8)
  - VOMITING [None]
  - INAPPROPRIATE SCHEDULE OF DRUG ADMINISTRATION [None]
  - DEHYDRATION [None]
  - HEREDITARY ANGIOEDEMA [None]
  - GALLBLADDER NON-FUNCTIONING [None]
  - ANGIOEDEMA [None]
  - ABNORMAL LOSS OF WEIGHT [None]
  - PAIN [None]
